FAERS Safety Report 18489101 (Version 2)
Quarter: 2021Q4

REPORT INFORMATION
  Report Type: Report from Study
  Country: CA (occurrence: CA)
  Receive Date: 20201111
  Receipt Date: 20211018
  Transmission Date: 20220303
  Serious: Yes (Other)
  Sender: FDA-Public Use
  Company Number: CA-TAKEDA-CA201613928

PATIENT
  Age: 64 Year
  Sex: Female

DRUGS (6)
  1. ICATIBANT ACETATE [Suspect]
     Active Substance: ICATIBANT ACETATE
     Indication: Hereditary angioedema
     Dosage: 30 MILLIGRAM, AS REQ^D
     Route: 058
     Dates: start: 20160716, end: 20211012
  2. ICATIBANT ACETATE [Suspect]
     Active Substance: ICATIBANT ACETATE
     Indication: Hereditary angioedema
     Dosage: 30 MILLIGRAM, AS REQ^D
     Route: 058
     Dates: start: 20160716, end: 20211012
  3. BERINERT [Concomitant]
     Active Substance: HUMAN C1-ESTERASE INHIBITOR
     Indication: Product used for unknown indication
     Dosage: 1500 INTERNATIONAL UNIT, 2/WEEK
     Route: 065
     Dates: start: 20100701, end: 20190911
  4. COUMADIN [Concomitant]
     Active Substance: WARFARIN SODIUM
     Indication: Product used for unknown indication
     Dosage: UNK
     Route: 065
     Dates: end: 20201029
  5. PRISTIQ EXTENDED-RELEASE [Concomitant]
     Active Substance: DESVENLAFAXINE SUCCINATE
     Indication: Depression
     Dosage: 50 MILLIGRAM
     Route: 065
  6. PRISTIQ EXTENDED-RELEASE [Concomitant]
     Active Substance: DESVENLAFAXINE SUCCINATE
     Dosage: 100 MILLIGRAM
     Route: 065

REACTIONS (3)
  - Hereditary angioedema [Recovered/Resolved]
  - Sepsis [Unknown]
  - Stress [Unknown]

NARRATIVE: CASE EVENT DATE: 20160905
